FAERS Safety Report 5015614-8 (Version None)
Quarter: 2006Q2

REPORT INFORMATION
  Report Type: 
  Country: None (occurrence: None)
  Receive Date: 20060601
  Receipt Date: 20060111
  Transmission Date: 20061013
  Serious: Yes (Other)
  Sender: FDA-Public Use
  Company Number: PHNU2006DE00528

PATIENT
  Age: 2 Year
  Sex: Male
  Weight: 13.4 kg

DRUGS (1)
  1. ELIDEL [Suspect]
     Indication: NEURODERMATITIS
     Dosage: UNK, PRN
     Route: 061
     Dates: start: 20030101

REACTIONS (3)
  - BLINDNESS UNILATERAL [None]
  - NEURODERMATITIS [None]
  - STRABISMUS [None]
